FAERS Safety Report 10570200 (Version 3)
Quarter: 2014Q4

REPORT INFORMATION
  Report Type: Report from Study
  Country: BR (occurrence: BR)
  Receive Date: 20141107
  Receipt Date: 20141121
  Transmission Date: 20150529
  Serious: Yes (Other)
  Sender: FDA-Public Use
  Company Number: PHHY2014BR139344

PATIENT
  Sex: Female

DRUGS (4)
  1. SANDOSTATIN LAR DEPOT [Suspect]
     Active Substance: OCTREOTIDE ACETATE
     Dosage: 1 DF, EVERY 28 DAYS
     Route: 065
  2. DOSTINEX [Suspect]
     Active Substance: CABERGOLINE
     Indication: ACROMEGALY
     Dosage: 0.5 DF, ON TUESDAY AND THURSDAY
     Route: 065
  3. DOSTINEX [Suspect]
     Active Substance: CABERGOLINE
     Dosage: 0.5 DF, ON TUESDAY AND THURSDAY
     Route: 065
     Dates: end: 2008
  4. SANDOSTATIN LAR DEPOT [Suspect]
     Active Substance: OCTREOTIDE ACETATE
     Indication: ACRAL OVERGROWTH
     Dosage: 1 DF, EVERY 28 DAYS
     Route: 065

REACTIONS (4)
  - Gestational hypertension [Recovered/Resolved]
  - Disease progression [Unknown]
  - Lactation disorder [Unknown]
  - Maternal exposure during pregnancy [Unknown]
